FAERS Safety Report 21922075 (Version 1)
Quarter: 2023Q1

REPORT INFORMATION
  Report Type: Report from Study
  Country: HU (occurrence: HU)
  Receive Date: 20230128
  Receipt Date: 20230128
  Transmission Date: 20230418
  Serious: Yes (Hospitalization)
  Sender: FDA-Public Use
  Company Number: HU-BNTAG-10000514

PATIENT
  Age: 65 Year
  Sex: Female

DRUGS (24)
  1. CEMIPLIMAB [Suspect]
     Active Substance: CEMIPLIMAB
     Indication: Squamous cell carcinoma of lung
     Dosage: 350 MG
     Route: 042
     Dates: start: 20221007
  2. CEMIPLIMAB [Suspect]
     Active Substance: CEMIPLIMAB
     Dosage: 350 MG
     Route: 042
     Dates: start: 20230106
  3. ENOMIMERAN [Suspect]
     Active Substance: ENOMIMERAN
     Indication: Squamous cell carcinoma of lung
     Dosage: UNK
     Route: 042
     Dates: start: 20220826
  4. ENOMIMERAN [Suspect]
     Active Substance: ENOMIMERAN
     Dosage: 90 UG, QD
     Route: 042
     Dates: start: 20230106, end: 20230106
  5. SPIRIVA [Concomitant]
     Active Substance: TIOTROPIUM BROMIDE MONOHYDRATE
     Indication: Chronic obstructive pulmonary disease
     Dosage: 18 UG, WEEKLY
     Route: 055
     Dates: start: 20220701
  6. VENTOLIN [Concomitant]
     Active Substance: ALBUTEROL SULFATE
     Indication: Chronic obstructive pulmonary disease
     Route: 055
     Dates: start: 2014
  7. MYOFLEXIN [Concomitant]
     Indication: Peripheral arterial occlusive disease
     Route: 048
     Dates: start: 2014
  8. APO-FAMOTIDIN [Concomitant]
     Indication: Gastric ulcer
     Route: 048
     Dates: start: 2007
  9. ROSUVASTATIN CALCIUM [Concomitant]
     Active Substance: ROSUVASTATIN CALCIUM
     Indication: Peripheral arterial occlusive disease
     Route: 048
     Dates: start: 2006
  10. VINPOCETINE [Concomitant]
     Active Substance: VINPOCETINE
     Indication: Cerebral arteriosclerosis
     Route: 048
     Dates: start: 2018
  11. ASPIRIN [Concomitant]
     Active Substance: ASPIRIN
     Indication: Peripheral arterial occlusive disease
     Route: 048
     Dates: start: 2006
  12. HALIDOR [Concomitant]
     Indication: Peripheral arterial occlusive disease
     Route: 048
     Dates: start: 2006
  13. ALPRAZOLAM [Concomitant]
     Active Substance: ALPRAZOLAM
     Indication: Anxiety
     Dosage: THREE TABLETS BEFORE SLEEPING
     Route: 048
     Dates: start: 2006
  14. PENTOXIFYLLINE [Concomitant]
     Active Substance: PENTOXIFYLLINE
     Indication: Peripheral arterial occlusive disease
     Route: 048
     Dates: start: 2006
  15. DIHYDROCODEINE BITARTRATE [Concomitant]
     Active Substance: DIHYDROCODEINE BITARTRATE
     Indication: Product used for unknown indication
     Route: 048
     Dates: start: 2021
  16. NAPROXEN [Concomitant]
     Active Substance: NAPROXEN
     Indication: Peripheral arterial occlusive disease
     Dosage: 550 MG
     Route: 048
     Dates: start: 2006
  17. NAPROXEN [Concomitant]
     Active Substance: NAPROXEN
     Indication: Pyrexia
     Dosage: 550 MG, AS NECESSARY
     Route: 048
     Dates: start: 20220805, end: 20220805
  18. FERROUS SULFATE [Concomitant]
     Active Substance: FERROUS SULFATE
     Indication: Prophylaxis
     Route: 048
     Dates: start: 20220827
  19. MEGACE [Concomitant]
     Active Substance: MEGESTROL ACETATE
     Indication: Prophylaxis
     Route: 048
     Dates: start: 20220829
  20. DULCOLAX (BISACODYL) [Concomitant]
     Active Substance: BISACODYL
     Indication: Prophylaxis
     Route: 048
     Dates: start: 20221215
  21. CURIDOL [PARACETAMOL;TRAMADOL HYDROCHLORIDE] [Concomitant]
     Indication: Pyrexia
     Route: 048
     Dates: start: 20221027, end: 20221028
  22. PERITOL [CYPROHEPTADINE HYDROCHLORIDE] [Concomitant]
     Indication: Prophylaxis
     Route: 048
     Dates: start: 20230112
  23. ENOXAPARIN SODIUM [Concomitant]
     Active Substance: ENOXAPARIN SODIUM
     Indication: Hypercoagulation
     Route: 058
     Dates: start: 20190807, end: 20220824
  24. ENOXAPARIN SODIUM [Concomitant]
     Active Substance: ENOXAPARIN SODIUM
     Route: 058
     Dates: start: 20220825

REACTIONS (1)
  - Fatigue [Not Recovered/Not Resolved]

NARRATIVE: CASE EVENT DATE: 20230113
